FAERS Safety Report 6722787-5 (Version None)
Quarter: 2010Q2

REPORT INFORMATION
  Report Type: 
  Country: None (occurrence: None)
  Receive Date: 20100512
  Receipt Date: 20100512
  Transmission Date: 20101027
  Serious: Yes (Other)
  Sender: FDA-Public Use
  Company Number: None

PATIENT
  Age: 57 Year
  Sex: Male
  Weight: 72.5755 kg

DRUGS (8)
  1. VECTICAL [Suspect]
     Indication: PSORIASIS
     Dosage: THIN COAT APPLIED TO AFFECTED DAILY TOP
     Route: 061
     Dates: start: 20100315, end: 20100510
  2. HUMIRA [Concomitant]
  3. ZOLOFT [Concomitant]
  4. BACLOFEN [Concomitant]
  5. THYROID TAB [Concomitant]
  6. ALLOPURINOL [Concomitant]
  7. PRAZOSIN HCL [Concomitant]
  8. TRAZODONE HCL [Concomitant]

REACTIONS (2)
  - CONDITION AGGRAVATED [None]
  - PSORIASIS [None]
